FAERS Safety Report 8346696-3 (Version None)
Quarter: 2012Q2

REPORT INFORMATION
  Report Type: 
  Country: None (occurrence: None)
  Receive Date: 20120509
  Receipt Date: 20120508
  Transmission Date: 20120825
  Serious: Yes (Death)
  Sender: FDA-Public Use
  Company Number: PHFR2012GB002618

PATIENT
  Sex: Female

DRUGS (1)
  1. CLOZARIL [Suspect]
     Indication: SCHIZOPHRENIA
     Route: 048
     Dates: start: 20040104

REACTIONS (3)
  - RENAL FAILURE CHRONIC [None]
  - BRONCHOPNEUMONIA [None]
  - SCHIZOPHRENIA, PARANOID TYPE [None]
